FAERS Safety Report 6147070-0 (Version None)
Quarter: 2009Q2

REPORT INFORMATION
  Report Type: 
  Country: None (occurrence: None)
  Receive Date: 20090407
  Receipt Date: 20090330
  Transmission Date: 20091009
  Serious: Yes (Hospitalization)
  Sender: FDA-Public Use
  Company Number: JP-MERCK-0904USA00526

PATIENT
  Age: 77 Year
  Sex: Male

DRUGS (9)
  1. HYZAAR [Suspect]
     Indication: HYPERTENSION
     Route: 048
     Dates: start: 20090323, end: 20090301
  2. LIPITOR [Concomitant]
     Route: 048
  3. ALENAPION [Concomitant]
     Route: 048
  4. BUFFERIN [Concomitant]
     Route: 048
  5. BIOFERMIN [Concomitant]
     Route: 048
  6. NITOROL [Concomitant]
     Route: 065
  7. AMLODIPINE [Concomitant]
     Route: 048
  8. ADALAT CC [Concomitant]
     Route: 048
  9. BLOPRESS [Concomitant]
     Route: 048

REACTIONS (1)
  - LOSS OF CONSCIOUSNESS [None]
